FAERS Safety Report 8032676-4 (Version None)
Quarter: 2012Q1

REPORT INFORMATION
  Report Type: 
  Country: None (occurrence: None)
  Receive Date: 20120110
  Receipt Date: 20111024
  Transmission Date: 20120608
  Serious: No
  Sender: FDA-Public Use
  Company Number: US-COVIDIEN/TYCO HEALTHCARE/MALLINCKRODT-T201102421

PATIENT

DRUGS (1)
  1. OPTIRAY 160 [Suspect]
     Indication: ANGIOGRAM
     Dosage: 150 ML
     Route: 042
     Dates: start: 20111021, end: 20111021

REACTIONS (4)
  - THROAT IRRITATION [None]
  - PRURITUS [None]
  - EYE PRURITUS [None]
  - RASH [None]
